FAERS Safety Report 17258837 (Version 1)
Quarter: 2020Q1

REPORT INFORMATION
  Report Type: Spontaneous
  Country: US (occurrence: US)
  Receive Date: 20200110
  Receipt Date: 20200110
  Transmission Date: 20200409
  Serious: No
  Sender: FDA-Public Use
  Company Number: US-BIODELIVERY SCIENCES INTERNATIONAL-2019BDSI0907

PATIENT
  Age: 49 Year
  Sex: Female

DRUGS (3)
  1. NALDEMEDINE [Suspect]
     Active Substance: NALDEMEDINE
     Indication: PRODUCT USED FOR UNKNOWN INDICATION
     Route: 048
     Dates: start: 201910, end: 201911
  2. NALDEMEDINE [Suspect]
     Active Substance: NALDEMEDINE
     Route: 048
     Dates: start: 201910, end: 201911
  3. NALDEMEDINE [Suspect]
     Active Substance: NALDEMEDINE
     Route: 048
     Dates: start: 201911

REACTIONS (1)
  - Inappropriate schedule of product administration [Recovered/Resolved]

NARRATIVE: CASE EVENT DATE: 201911
